FAERS Safety Report 24782370 (Version 1)
Quarter: 2024Q4

REPORT INFORMATION
  Report Type: Other
  Country: ES (occurrence: ES)
  Receive Date: 20241227
  Receipt Date: 20241227
  Transmission Date: 20250115
  Serious: Yes (Hospitalization)
  Sender: B BRAUN
  Company Number: ES-B.Braun Medical Inc.-2167898

PATIENT
  Age: 53 Year
  Sex: Female

DRUGS (2)
  1. HEPARIN SODIUM IN DEXTROSE [Suspect]
     Active Substance: HEPARIN SODIUM
     Indication: Thrombosis
  2. JANSSEN COVID-19 VACCINE [Suspect]
     Active Substance: AD26.COV2.S

REACTIONS (1)
  - Thrombosis with thrombocytopenia syndrome [Unknown]
